FAERS Safety Report 10561846 (Version 2)
Quarter: 2014Q4

REPORT INFORMATION
  Report Type: Spontaneous
  Country: IT (occurrence: IT)
  Receive Date: 20141104
  Receipt Date: 20141110
  Transmission Date: 20150529
  Serious: Yes (Hospitalization)
  Sender: FDA-Public Use
  Company Number: IT-AUROBINDO-AUR-APL-2014-11396

PATIENT
  Age: 25 Year
  Sex: Female

DRUGS (2)
  1. SERTRALINE [Suspect]
     Active Substance: SERTRALINE HYDROCHLORIDE
     Indication: PRODUCT USED FOR UNKNOWN INDICATION
     Dosage: 2 G, DAILY
     Route: 048
     Dates: start: 20141020, end: 20141020
  2. RIVOTRIL [Suspect]
     Active Substance: CLONAZEPAM
     Indication: PRODUCT USED FOR UNKNOWN INDICATION
     Dosage: 120 MG, DAILY
     Route: 048
     Dates: start: 20141020, end: 20141020

REACTIONS (6)
  - Sopor [Recovering/Resolving]
  - Mydriasis [Unknown]
  - Bradypnoea [Unknown]
  - Tachycardia [Recovered/Resolved]
  - Overdose [Recovering/Resolving]
  - Bradyphrenia [Unknown]

NARRATIVE: CASE EVENT DATE: 20141020
